FAERS Safety Report 5841621-9 (Version None)
Quarter: 2008Q3

REPORT INFORMATION
  Report Type: 
  Country: None (occurrence: None)
  Receive Date: 20080812
  Receipt Date: 20080731
  Transmission Date: 20090109
  Serious: Yes (Other)
  Sender: FDA-Public Use
  Company Number: US-ASTRAZENECA-2008UW15730

PATIENT
  Age: 67 Year
  Sex: Female
  Weight: 64.4 kg

DRUGS (7)
  1. ARIMIDEX [Suspect]
     Indication: BREAST CANCER
     Route: 048
     Dates: start: 20040101
  2. ZOMETA [Concomitant]
  3. GABAPENTIN [Concomitant]
  4. BUSPIRONE HCL [Concomitant]
  5. RANITIDINE [Concomitant]
  6. LEVOTHYROXINE SODIUM [Concomitant]
  7. ATENOLOL [Concomitant]

REACTIONS (2)
  - FALL [None]
  - WRIST FRACTURE [None]
